FAERS Safety Report 5021005-6 (Version None)
Quarter: 2006Q2

REPORT INFORMATION
  Report Type: 
  Country: None (occurrence: None)
  Receive Date: 20060606
  Receipt Date: 20060606
  Transmission Date: 20061013
  Serious: Yes (Hospitalization)
  Sender: FDA-Public Use
  Company Number: None

PATIENT
  Age: 53 Year
  Sex: Female

DRUGS (1)
  1. IMITREX STATDOSE [Suspect]
     Indication: MIGRAINE
     Dosage: USE 1 INJECTION UNDER THE SKIN AT ONSET OF HEADACHE AS DIRECTED
     Route: 059

REACTIONS (2)
  - PHARMACEUTICAL PRODUCT COMPLAINT [None]
  - URTICARIA [None]
